FAERS Safety Report 10878975 (Version 1)
Quarter: 2015Q1

REPORT INFORMATION
  Report Type: Spontaneous
  Country: US (occurrence: None)
  Receive Date: 20150224
  Receipt Date: 20150224
  Transmission Date: 20150721
  Serious: No
  Sender: FDA-Public Use
  Company Number: None

PATIENT
  Sex: Female

DRUGS (1)
  1. RESTASIS [Suspect]
     Active Substance: CYCLOSPORINE
     Indication: LACRIMAL DISORDER
     Dosage: INTO THE EYE
     Route: 047

REACTIONS (2)
  - Eye pruritus [None]
  - Eye irritation [None]

NARRATIVE: CASE EVENT DATE: 20150223
